FAERS Safety Report 6443347-X (Version None)
Quarter: 2009Q4

REPORT INFORMATION
  Report Type: 
  Country: None (occurrence: None)
  Receive Date: 20091117
  Receipt Date: 20091106
  Transmission Date: 20100525
  Serious: Yes (Hospitalization)
  Sender: FDA-Public Use
  Company Number: US-MERCK-0911USA01464

PATIENT
  Age: 76 Year
  Sex: Male

DRUGS (16)
  1. DECADRON [Suspect]
     Route: 048
  2. REVLIMID [Suspect]
     Indication: MULTIPLE MYELOMA
     Route: 048
     Dates: start: 20090617
  3. ASPIRIN [Concomitant]
     Indication: THROMBOSIS PROPHYLAXIS
     Route: 065
  4. ASPIRIN [Concomitant]
     Route: 065
  5. ATIVAN [Concomitant]
     Route: 048
     Dates: start: 20090720
  6. LACTULOSE [Concomitant]
     Route: 048
     Dates: start: 20090710
  7. OXYCONTIN [Concomitant]
     Indication: BACK PAIN
     Route: 048
     Dates: start: 20090710
  8. TYLENOL (CAPLET) [Concomitant]
     Indication: BACK PAIN
     Route: 048
     Dates: start: 20090610
  9. VICODIN [Concomitant]
     Indication: BACK PAIN
     Route: 048
     Dates: start: 20090610
  10. PRILOSEC [Concomitant]
     Indication: PROPHYLAXIS
     Route: 048
     Dates: start: 20090320
  11. KLOR-CON [Concomitant]
     Route: 048
  12. ATENOLOL [Concomitant]
     Indication: HYPERTENSION
     Route: 048
  13. HYDROCHLOROTHIAZIDE [Concomitant]
     Indication: HYPERTENSION
     Route: 048
  14. LUPRON DEPOT [Concomitant]
     Route: 030
  15. CALCIUM (UNSPECIFIED) AND VITAMINS (UNSPECIFIED) [Concomitant]
     Indication: OSTEOPOROSIS
     Route: 048
  16. MESALAMINE [Concomitant]
     Indication: CONSTIPATION
     Route: 054

REACTIONS (6)
  - BALANCE DISORDER [None]
  - BLOOD COUNT ABNORMAL [None]
  - DEEP VEIN THROMBOSIS [None]
  - NEUROPATHY PERIPHERAL [None]
  - PLATELET COUNT DECREASED [None]
  - RECTAL HAEMORRHAGE [None]
